FAERS Safety Report 9148424 (Version 2)
Quarter: 2013Q2

REPORT INFORMATION
  Report Type: Report from Study
  Country: NL (occurrence: NL)
  Receive Date: 20130308
  Receipt Date: 20130607
  Transmission Date: 20140414
  Serious: Yes (Death)
  Sender: FDA-Public Use
  Company Number: PHHY2013NL022548

PATIENT
  Sex: Male

DRUGS (8)
  1. ZOMETA [Suspect]
     Indication: LUNG CANCER METASTATIC
     Dosage: 4 MG/ 100 ML ONCE PER 28 DAYS
     Route: 042
  2. ZOMETA [Suspect]
     Dosage: 4 MG/ 100 ML ONCE PER 28 DAYS
     Route: 042
     Dates: start: 20130208
  3. DICLOFENAC [Concomitant]
     Dosage: 50 MG, BID
  4. CALCICHEW D3 [Concomitant]
     Dosage: 500/400MG, 1DD
  5. FRAGMIN [Concomitant]
     Dosage: 15000 UG, 1DD
     Route: 058
  6. HYDROCHLOROTHIAZIDE [Concomitant]
     Dosage: 12.5 MG, 1DD
  7. ENALAPRIL [Concomitant]
     Dosage: 5 MG, 1DD
  8. PARACETAMOL [Concomitant]
     Dosage: 500 MG, WHEN NEEDED UP TO 5 TIMES DAILY

REACTIONS (1)
  - Death [Fatal]
